FAERS Safety Report 9886115 (Version 1)
Quarter: 2014Q1

REPORT INFORMATION
  Report Type: Spontaneous
  Country: CA (occurrence: CA)
  Receive Date: 20140210
  Receipt Date: 20140210
  Transmission Date: 20141002
  Serious: Yes (Hospitalization)
  Sender: FDA-Public Use
  Company Number: CA-MERCK-1402CAN002579

PATIENT
  Age: 24 Year
  Sex: Female

DRUGS (3)
  1. PEGETRON [Suspect]
     Route: 065
  2. PEGINTERFERON ALFA-2B [Suspect]
     Route: 065
  3. INCIVEK [Suspect]
     Dosage: UNK
     Route: 048

REACTIONS (2)
  - Psychotic disorder [Recovering/Resolving]
  - Delirium [Recovering/Resolving]
